FAERS Safety Report 19196048 (Version 3)
Quarter: 2021Q3

REPORT INFORMATION
  Report Type: Report from Study
  Country: FR (occurrence: FR)
  Receive Date: 20210429
  Receipt Date: 20210702
  Transmission Date: 20211014
  Serious: Yes (Hospitalization)
  Sender: FDA-Public Use
  Company Number: FR-ASTELLAS-2021US015234

PATIENT
  Age: 60 Year
  Sex: Female

DRUGS (4)
  1. TACROLIMUS. [Suspect]
     Active Substance: TACROLIMUS
     Indication: RENAL TRANSPLANT
     Dosage: 10 MG, ONCE
     Route: 048
     Dates: start: 20170728, end: 20200325
  2. SOLUPRED [Concomitant]
     Indication: IMMUNOSUPPRESSION
     Dosage: 5 UNKNOWN UNIT, ONCE DAILY
     Route: 065
     Dates: start: 20140629
  3. CICLOSPORINE [Concomitant]
     Active Substance: CYCLOSPORINE
     Indication: IMMUNOSUPPRESSION
     Dosage: 150 UNKNOWN UNIT, ONCE DAILY
     Route: 065
     Dates: start: 20200326
  4. MYFORTIC [Concomitant]
     Active Substance: MYCOPHENOLATE SODIUM
     Indication: IMMUNOSUPPRESSION
     Dosage: 1080 UNKNOWN UNIT, ONCE DAILY
     Route: 065
     Dates: start: 20140629

REACTIONS (2)
  - Nervous system disorder [Not Recovered/Not Resolved]
  - Visual impairment [Not Recovered/Not Resolved]

NARRATIVE: CASE EVENT DATE: 20200124
